FAERS Safety Report 21925310 (Version 2)
Quarter: 2023Q1

REPORT INFORMATION
  Report Type: Report from Study
  Country: US (occurrence: US)
  Receive Date: 20230130
  Receipt Date: 20230203
  Transmission Date: 20230418
  Serious: Yes (Other)
  Sender: FDA-Public Use
  Company Number: US-002147023-NVSC2022US225182

PATIENT
  Age: 69 Year
  Sex: Female
  Weight: 85 kg

DRUGS (5)
  1. ISCALIMAB [Suspect]
     Active Substance: ISCALIMAB
     Indication: Liver transplant
     Dosage: 2631 MG, ONCE
     Route: 058
     Dates: start: 20210611
  2. ISCALIMAB [Suspect]
     Active Substance: ISCALIMAB
     Dosage: 1290 MG, ONCE
     Route: 058
     Dates: start: 20210618
  3. ISCALIMAB [Suspect]
     Active Substance: ISCALIMAB
     Dosage: 600 MG, ONCE
     Route: 058
     Dates: start: 20210702
  4. TACROLIMUS [Suspect]
     Active Substance: TACROLIMUS
     Indication: Liver transplant
     Dosage: 2 MG, BID
     Route: 048
     Dates: start: 20210612
  5. PREDNISONE [Concomitant]
     Active Substance: PREDNISONE
     Indication: Hepatic enzyme increased
     Dosage: UNK
     Route: 065
     Dates: start: 20210829

REACTIONS (1)
  - Squamous cell carcinoma [Recovered/Resolved]

NARRATIVE: CASE EVENT DATE: 20221003
